FAERS Safety Report 18801614 (Version 2)
Quarter: 2021Q1

REPORT INFORMATION
  Report Type: Spontaneous
  Country: US (occurrence: US)
  Receive Date: 20210128
  Receipt Date: 20210301
  Transmission Date: 20210419
  Serious: Yes (Death, Hospitalization, Other)
  Sender: FDA-Public Use
  Company Number: US-INCYTE CORPORATION-2021IN000728

PATIENT

DRUGS (2)
  1. JAKAFI [Suspect]
     Active Substance: RUXOLITINIB
     Indication: ACUTE GRAFT VERSUS HOST DISEASE
     Dosage: 5 MILLIGRAM, BID
     Route: 048
     Dates: start: 20210106
  2. JAKAFI [Suspect]
     Active Substance: RUXOLITINIB
     Dosage: 5 MILLIGRAM, BID
     Route: 048
     Dates: start: 20210104

REACTIONS (4)
  - Death [Fatal]
  - Asthenia [Unknown]
  - Epistaxis [Unknown]
  - COVID-19 [Unknown]

NARRATIVE: CASE EVENT DATE: 20210122
